FAERS Safety Report 18208960 (Version 1)
Quarter: 2020Q3

REPORT INFORMATION
  Report Type: Spontaneous
  Country: US (occurrence: US)
  Receive Date: 20200828
  Receipt Date: 20200828
  Transmission Date: 20201103
  Serious: No
  Sender: FDA-Public Use
  Company Number: US-MYLANLABS-2020M1073965

PATIENT
  Sex: Female

DRUGS (1)
  1. PIROXICAM CAPSULES, USP [Suspect]
     Active Substance: PIROXICAM
     Indication: ARTHRITIS
     Dosage: UNK
     Route: 048

REACTIONS (1)
  - Insomnia [Unknown]
